FAERS Safety Report 9308828 (Version 1)
Quarter: 2013Q2

REPORT INFORMATION
  Report Type: Report from Study
  Country: AU (occurrence: AU)
  Receive Date: 20130524
  Receipt Date: 20130524
  Transmission Date: 20140414
  Serious: Yes (Life-Threatening)
  Sender: FDA-Public Use
  Company Number: AU-BRISTOL-MYERS SQUIBB COMPANY-17028564

PATIENT
  Age: 65 Year
  Sex: Male
  Weight: 76 kg

DRUGS (8)
  1. ORENCIA [Suspect]
     Indication: RHEUMATOID ARTHRITIS
     Route: 042
     Dates: start: 20111121
  2. METHOTREXATE [Suspect]
  3. FOLIC ACID [Concomitant]
  4. DIABEX [Concomitant]
  5. JANUVIA [Concomitant]
  6. LIPITOR [Concomitant]
  7. OSTELIN [Concomitant]
     Dosage: 1 DF = 1000 UNITS NOS
  8. PREDNISOLONE [Concomitant]

REACTIONS (1)
  - Lung neoplasm malignant [Unknown]
